FAERS Safety Report 5668648-4 (Version None)
Quarter: 2008Q1

REPORT INFORMATION
  Report Type: 
  Country: None (occurrence: None)
  Receive Date: 20080315
  Receipt Date: 20080228
  Transmission Date: 20080703
  Serious: No
  Sender: FDA-Public Use
  Company Number: US-ABBOTT-08P-163-0440694-00

PATIENT
  Sex: Female
  Weight: 53.118 kg

DRUGS (8)
  1. HUMIRA [Suspect]
     Indication: CROHN'S DISEASE
     Route: 058
     Dates: start: 20070501
  2. PREDNISONE [Suspect]
     Indication: CROHN'S DISEASE
     Route: 048
     Dates: start: 20070901
  3. PREDNISONE [Suspect]
     Route: 048
     Dates: start: 20070101, end: 20070601
  4. PREDNISONE [Suspect]
     Route: 048
     Dates: start: 20070601
  5. ESOMEPRAZOLE MAGNESIUM [Concomitant]
     Indication: STOMACH DISCOMFORT
     Route: 048
     Dates: start: 20060101
  6. CLARITIN [Concomitant]
     Indication: HYPERSENSITIVITY
     Route: 048
  7. ZINC [Concomitant]
     Indication: DRUG USE FOR UNKNOWN INDICATION
     Route: 048
     Dates: start: 20070101
  8. CROMAGEN [Concomitant]
     Indication: DRUG USE FOR UNKNOWN INDICATION
     Route: 048
     Dates: start: 20040101

REACTIONS (3)
  - DIARRHOEA [None]
  - DRUG INEFFECTIVE [None]
  - MUSCLE SPASMS [None]
